FAERS Safety Report 8948010 (Version 2)
Quarter: 2013Q1

REPORT INFORMATION
  Report Type: Spontaneous
  Country: US (occurrence: US)
  Receive Date: 20121204
  Receipt Date: 20130103
  Transmission Date: 20140127
  Serious: Yes (Disabling, Other)
  Sender: FDA-Public Use
  Company Number: US-TEVA-366570USA

PATIENT
  Age: 55 Year
  Sex: Female

DRUGS (6)
  1. LEVOFLOXACIN [Suspect]
     Indication: BRONCHITIS
     Dosage: 500 MILLIGRAM DAILY;
     Route: 048
     Dates: start: 201201
  2. PROPRANOLOL [Concomitant]
     Dosage: 160 MILLIGRAM DAILY;
     Route: 048
  3. SYNTHROID [Concomitant]
     Dosage: 137 MICROGRAM DAILY;
     Route: 048
  4. DUOVENT [Concomitant]
  5. VITAMIN B50 [Concomitant]
     Dosage: 1 VITAMIN
     Route: 048
  6. FISH OIL [Concomitant]

REACTIONS (20)
  - Tendon rupture [Recovering/Resolving]
  - Arthropathy [Unknown]
  - Tendonitis [Recovered/Resolved with Sequelae]
  - Haemorrhage [Recovered/Resolved with Sequelae]
  - Skin discolouration [Recovering/Resolving]
  - Joint effusion [Recovered/Resolved with Sequelae]
  - Dysstasia [Unknown]
  - Impaired work ability [Unknown]
  - Swelling [Recovered/Resolved with Sequelae]
  - Muscular weakness [Recovering/Resolving]
  - Asthenia [Recovering/Resolving]
  - Vomiting [Recovering/Resolving]
  - Diarrhoea [Recovering/Resolving]
  - Paraesthesia [Not Recovered/Not Resolved]
  - Hypoaesthesia [Not Recovered/Not Resolved]
  - Pruritus [Unknown]
  - Burning sensation [Unknown]
  - Arthralgia [Recovered/Resolved with Sequelae]
  - Ecchymosis [Recovered/Resolved with Sequelae]
  - Drug intolerance [Recovered/Resolved with Sequelae]
